FAERS Safety Report 7797679-3 (Version None)
Quarter: 2011Q4

REPORT INFORMATION
  Report Type: 
  Country: None (occurrence: None)
  Receive Date: 20111005
  Receipt Date: 20111003
  Transmission Date: 20120403
  Serious: Yes (Other)
  Sender: FDA-Public Use
  Company Number: PHHY2011JP84121

PATIENT
  Age: 67 Year
  Sex: Male

DRUGS (2)
  1. DOCETAXEL ACETATE [Concomitant]
  2. ZOMETA [Suspect]
     Indication: METASTASES TO BONE
     Route: 042

REACTIONS (4)
  - PHARYNGEAL ABSCESS [None]
  - BRONCHOSTENOSIS [None]
  - PAIN IN JAW [None]
  - CELLULITIS PHARYNGEAL [None]
